FAERS Safety Report 11283812 (Version 1)
Quarter: 2015Q3

REPORT INFORMATION
  Report Type: Spontaneous
  Country: US (occurrence: US)
  Receive Date: 20150720
  Receipt Date: 20150720
  Transmission Date: 20151125
  Serious: No
  Sender: FDA-Public Use
  Company Number: US-PFIZER INC-2015239623

PATIENT
  Sex: Male

DRUGS (2)
  1. COVERA-HS [Interacting]
     Active Substance: VERAPAMIL HYDROCHLORIDE
  2. GABAPENTIN. [Suspect]
     Active Substance: GABAPENTIN
     Indication: FIBROMYALGIA
     Dosage: MAXIMUM DOSE, 3X/DAY
     Route: 048
     Dates: start: 2007, end: 2008

REACTIONS (1)
  - Drug interaction [Unknown]
